FAERS Safety Report 17050201 (Version 4)
Quarter: 2020Q3

REPORT INFORMATION
  Report Type: Report from Study
  Country: US (occurrence: US)
  Receive Date: 20191119
  Receipt Date: 20200729
  Transmission Date: 20201102
  Serious: Yes (Hospitalization)
  Sender: FDA-Public Use
  Company Number: US-ACTELION-A-US2018-174748

PATIENT
  Sex: Female
  Weight: 110.66 kg

DRUGS (2)
  1. ELIQUIS [Concomitant]
     Active Substance: APIXABAN
  2. OPSUMIT [Suspect]
     Active Substance: MACITENTAN
     Indication: PULMONARY ARTERIAL HYPERTENSION
     Dosage: 10 MG, QD
     Route: 048

REACTIONS (6)
  - Acute respiratory failure [Unknown]
  - Hospitalisation [Unknown]
  - Cardiac disorder [Unknown]
  - Dyspnoea [Unknown]
  - Hyperkalaemia [Unknown]
  - Renal disorder [Unknown]
